FAERS Safety Report 15167422 (Version 3)
Quarter: 2018Q3

REPORT INFORMATION
  Report Type: Report from Study
  Country: NO (occurrence: NO)
  Receive Date: 20180719
  Receipt Date: 20180808
  Transmission Date: 20181010
  Serious: Yes (Death, Hospitalization, Disabling)
  Sender: FDA-Public Use
  Company Number: NO-EISAI MEDICAL RESEARCH-EC-2018-038334

PATIENT
  Age: 39 Year
  Sex: Female
  Weight: 53 kg

DRUGS (14)
  1. METHYLPREDNISOLON [Concomitant]
     Active Substance: METHYLPREDNISOLONE
  2. PANTOPRAZOL [Concomitant]
     Active Substance: PANTOPRAZOLE SODIUM
  3. FENTANYL. [Concomitant]
     Active Substance: FENTANYL
  4. STILNOCT [Concomitant]
     Active Substance: ZOLPIDEM TARTRATE
  5. VIVAL [Concomitant]
     Active Substance: DIAZEPAM
  6. CALCIGRAN FORTE [Concomitant]
     Active Substance: CALCIUM CARBONATE\CHOLECALCIFEROL
  7. LENVIMA [Suspect]
     Active Substance: LENVATINIB
     Indication: THYROID CANCER
     Route: 048
     Dates: start: 20180405, end: 20180703
  8. LEVAXIN [Concomitant]
     Active Substance: LEVOTHYROXINE SODIUM
  9. SOMAC [Concomitant]
     Active Substance: PANTOPRAZOLE SODIUM
  10. MEDROL [Concomitant]
     Active Substance: METHYLPREDNISOLONE
  11. MORPHIN [Concomitant]
     Active Substance: MORPHINE
  12. CALCIUM/VIT D [Concomitant]
  13. DALTEPARIN NATRIUM [Concomitant]
  14. FRAGMIN [Concomitant]
     Active Substance: DALTEPARIN SODIUM

REACTIONS (5)
  - Decreased appetite [Not Recovered/Not Resolved]
  - Fatigue [Not Recovered/Not Resolved]
  - Nausea [Not Recovered/Not Resolved]
  - Malignant neoplasm progression [Fatal]
  - Insomnia [Not Recovered/Not Resolved]

NARRATIVE: CASE EVENT DATE: 2018
